FAERS Safety Report 15644698 (Version 1)
Quarter: 2018Q4

REPORT INFORMATION
  Report Type: Spontaneous
  Country: NL (occurrence: NL)
  Receive Date: 20181121
  Receipt Date: 20181121
  Transmission Date: 20190205
  Serious: Yes (Death, Other)
  Sender: FDA-Public Use
  Company Number: NL-GLAXOSMITHKLINE-NL2018209691

PATIENT
  Sex: Male
  Weight: 4 kg

DRUGS (2)
  1. LAMICTAL [Suspect]
     Active Substance: LAMOTRIGINE
     Dosage: ONCE DAILY 150MG LAMOTRIGINGE
     Route: 064
  2. LAMICTAL [Suspect]
     Active Substance: LAMOTRIGINE
     Indication: EPILEPSY
     Dosage: 2 DAILY 100MG LAMOTRIGINE
     Route: 064

REACTIONS (2)
  - Foetal exposure during pregnancy [Unknown]
  - Death neonatal [Fatal]

NARRATIVE: CASE EVENT DATE: 20181101
